FAERS Safety Report 17400973 (Version 1)
Quarter: 2020Q1

REPORT INFORMATION
  Report Type: Spontaneous
  Country: IT (occurrence: IT)
  Receive Date: 20200211
  Receipt Date: 20200211
  Transmission Date: 20200409
  Serious: Yes (Hospitalization, Other)
  Sender: FDA-Public Use
  Company Number: IT-VISTAPHARM, INC.-VER202001-000198

PATIENT
  Age: 5 Year

DRUGS (2)
  1. PHENYTOIN. [Suspect]
     Active Substance: PHENYTOIN
     Indication: PRODUCT USED FOR UNKNOWN INDICATION
     Dosage: 5 MG/KG, TWICE PER DAY
     Route: 042
  2. OMEPRAZOLE. [Suspect]
     Active Substance: OMEPRAZOLE
     Indication: PRODUCT USED FOR UNKNOWN INDICATION
     Dosage: 0.8 MG/KG, ONCE PER DAY
     Route: 042

REACTIONS (6)
  - Hyperventilation [Unknown]
  - Confusional state [Unknown]
  - Drug interaction [Unknown]
  - Toxicity to various agents [Unknown]
  - Extensor plantar response [Unknown]
  - Nystagmus [Unknown]
